FAERS Safety Report 7349648-5 (Version None)
Quarter: 2011Q1

REPORT INFORMATION
  Report Type: 
  Country: None (occurrence: None)
  Receive Date: 20110314
  Receipt Date: 20101018
  Transmission Date: 20110831
  Serious: No
  Sender: FDA-Public Use
  Company Number: A0888358A

PATIENT
  Age: 61 Year
  Sex: Female
  Weight: 69.5 kg

DRUGS (4)
  1. ASCORBIC ACID [Concomitant]
     Indication: IMMUNODEFICIENCY
     Dosage: 1000MGD PER DAY
  2. SYNTHROID [Suspect]
     Indication: THYROID DISORDER
     Dosage: 50MCG PER DAY
     Route: 048
  3. SYNTHROID [Suspect]
     Dosage: 25MCG PER DAY
     Route: 048
  4. AUGMENTIN '125' [Suspect]
     Indication: SINUSITIS
     Dosage: 500MG THREE TIMES PER DAY
     Route: 065

REACTIONS (20)
  - EMPHYSEMA [None]
  - BLOOD UREA INCREASED [None]
  - CONJUNCTIVITIS INFECTIVE [None]
  - EYE IRRITATION [None]
  - HYPERHIDROSIS [None]
  - FEELING JITTERY [None]
  - IMMUNODEFICIENCY [None]
  - CHEST PAIN [None]
  - FEAR [None]
  - BLOOD IRON DECREASED [None]
  - NASOPHARYNGITIS [None]
  - SINUSITIS [None]
  - TREMOR [None]
  - INCORRECT DOSE ADMINISTERED [None]
  - VIRAL INFECTION [None]
  - MALAISE [None]
  - RHINORRHOEA [None]
  - MYALGIA [None]
  - BACK PAIN [None]
  - COLD SWEAT [None]
